FAERS Safety Report 5944441-X (Version None)
Quarter: 2008Q4

REPORT INFORMATION
  Report Type: 
  Country: None (occurrence: None)
  Receive Date: 20081021
  Receipt Date: 20071002
  Transmission Date: 20090506
  Serious: Yes (Other)
  Sender: FDA-Public Use
  Company Number: US-WYE-H00557907

PATIENT
  Age: 63 Year
  Sex: Female
  Weight: 52.21 kg

DRUGS (1)
  1. PREMARIN [Suspect]
     Indication: MENOPAUSAL SYMPTOMS
     Dosage: 0.625 MG 1X PER 1 DAY, ORAL
     Route: 048
     Dates: end: 20070901

REACTIONS (4)
  - CHEILITIS [None]
  - DRUG WITHDRAWAL SYNDROME [None]
  - DRY SKIN [None]
  - SKIN IRRITATION [None]
